FAERS Safety Report 7701031-6 (Version None)
Quarter: 2011Q3

REPORT INFORMATION
  Report Type: 
  Country: None (occurrence: None)
  Receive Date: 20110822
  Receipt Date: 20110809
  Transmission Date: 20111222
  Serious: Yes (Hospitalization, Other)
  Sender: FDA-Public Use
  Company Number: US-BAYER-2011-023341

PATIENT
  Age: 38 Year
  Sex: Female
  Weight: 77.098 kg

DRUGS (9)
  1. METOCLOPRAMIDE HYDROCHLORIDE [Concomitant]
     Dosage: 10 MG, PRN
     Route: 048
     Dates: start: 20090601
  2. FIORICET [Concomitant]
     Indication: MIGRAINE
     Route: 048
  3. LORATADINE [Concomitant]
     Dosage: 10 MG, QD
     Route: 048
  4. BENADRYL [Concomitant]
  5. PREGABALIN [Concomitant]
     Dosage: 75 MG, BID
     Route: 048
     Dates: start: 20090601
  6. YAZ [Suspect]
     Indication: MENSTRUATION IRREGULAR
     Dosage: UNK
     Route: 048
     Dates: start: 20080101, end: 20090601
  7. LOPRESSOR [Concomitant]
     Indication: POSTURAL ORTHOSTATIC TACHYCARDIA SYNDROME
     Dosage: 25 MG, BID
     Route: 048
     Dates: start: 20070101
  8. IBUPROFEN [Concomitant]
     Dosage: 400 MG, PRN
     Route: 048
     Dates: start: 20090601
  9. MIDODRINE HYDROCHLORIDE [Concomitant]
     Indication: POSTURAL ORTHOSTATIC TACHYCARDIA SYNDROME
     Dosage: 10 MG, TID
     Route: 048
     Dates: start: 20080101

REACTIONS (3)
  - PULMONARY EMBOLISM [None]
  - INJURY [None]
  - DEEP VEIN THROMBOSIS [None]
